FAERS Safety Report 23842699 (Version 1)
Quarter: 2024Q2

REPORT INFORMATION
  Report Type: Spontaneous
  Country: US (occurrence: None)
  Receive Date: 20240509
  Receipt Date: 20240509
  Transmission Date: 20240716
  Serious: Yes (Hospitalization)
  Sender: FDA-Public Use
  Company Number: None

PATIENT
  Sex: Male
  Weight: 142 kg

DRUGS (1)
  1. TRAZODONE HCL [Suspect]
     Active Substance: TRAZODONE HYDROCHLORIDE
     Indication: Sleep disorder
     Dates: end: 20240214

REACTIONS (5)
  - Hallucination [None]
  - Aggression [None]
  - Skin ulcer [None]
  - Confusional state [None]
  - Osteomyelitis [None]

NARRATIVE: CASE EVENT DATE: 20240209
